FAERS Safety Report 4899412-1 (Version None)
Quarter: 2006Q1

REPORT INFORMATION
  Report Type: 
  Country: None (occurrence: None)
  Receive Date: 20060118
  Receipt Date: 20051005
  Transmission Date: 20060701
  Serious: No
  Sender: FDA-Public Use
  Company Number: 2005001962

PATIENT
  Age: 66 Year
  Sex: Female

DRUGS (3)
  1. TARCEVA [Suspect]
     Indication: NON-SMALL CELL LUNG CANCER
     Dosage: SEE IMAGE
     Route: 048
     Dates: start: 20050201, end: 20051007
  2. TARCEVA [Suspect]
     Indication: NON-SMALL CELL LUNG CANCER
     Dosage: SEE IMAGE
     Route: 048
     Dates: start: 20051008
  3. ACTONEL [Concomitant]

REACTIONS (5)
  - MUSCLE SPASMS [None]
  - NAIL DISCOLOURATION [None]
  - ONYCHOCLASIS [None]
  - PRURITUS [None]
  - SKIN FISSURES [None]
